FAERS Safety Report 21924550 (Version 1)
Quarter: 2023Q1

REPORT INFORMATION
  Report Type: Spontaneous
  Country: AR (occurrence: AR)
  Receive Date: 20230130
  Receipt Date: 20230130
  Transmission Date: 20230417
  Serious: Yes (Death, Other)
  Sender: FDA-Public Use
  Company Number: AR-BoehringerIngelheim-2023-BI-214920

PATIENT
  Age: 83 Year
  Sex: Female

DRUGS (2)
  1. OFEV [Suspect]
     Active Substance: NINTEDANIB
     Indication: Pulmonary fibrosis
     Dates: start: 2020
  2. OFEV [Suspect]
     Active Substance: NINTEDANIB
     Indication: Hypersensitivity pneumonitis

REACTIONS (2)
  - Respiratory failure [Fatal]
  - Pulmonary fibrosis [Fatal]

NARRATIVE: CASE EVENT DATE: 20230108
